FAERS Safety Report 5344100-0 (Version None)
Quarter: 2007Q2

REPORT INFORMATION
  Report Type: 
  Country: None (occurrence: None)
  Receive Date: 20070604
  Receipt Date: 20070601
  Transmission Date: 20071010
  Serious: Yes (Hospitalization)
  Sender: FDA-Public Use
  Company Number: B0473282A

PATIENT
  Age: 73 Year
  Sex: Male
  Weight: 91.5 kg

DRUGS (5)
  1. ARIXTRA [Suspect]
     Dosage: 2.5MG PER DAY
     Route: 058
     Dates: start: 20070401
  2. DIAMICRON [Concomitant]
  3. ALLOPURINOL [Concomitant]
  4. ACETAMINOPHEN [Concomitant]
  5. TOPALGIC ( FRANCE ) [Concomitant]

REACTIONS (1)
  - HAEMARTHROSIS [None]
